FAERS Safety Report 4459444-4 (Version None)
Quarter: 2004Q3

REPORT INFORMATION
  Report Type: 
  Country: None (occurrence: None)
  Receive Date: 20040927
  Receipt Date: 20040806
  Transmission Date: 20050211
  Serious: Yes (Hospitalization, Other)
  Sender: FDA-Public Use
  Company Number: PHBS2004BR10427

PATIENT
  Age: 4 Year
  Sex: Male
  Weight: 17 kg

DRUGS (2)
  1. RITALINA [Suspect]
     Indication: PSYCHOMOTOR HYPERACTIVITY
     Dosage: 10 MG, QD
     Route: 048
     Dates: start: 20040405, end: 20040919
  2. RITALIN LA [Suspect]
     Indication: PSYCHOMOTOR HYPERACTIVITY
     Route: 048
     Dates: start: 20040920

REACTIONS (6)
  - ABDOMINAL PAIN UPPER [None]
  - APATHY [None]
  - CRYING [None]
  - DEPRESSED MOOD [None]
  - HEADACHE [None]
  - MENINGITIS [None]
